FAERS Safety Report 18982211 (Version 1)
Quarter: 2021Q1

REPORT INFORMATION
  Report Type: Report from Study
  Country: PY (occurrence: PY)
  Receive Date: 20210308
  Receipt Date: 20210308
  Transmission Date: 20210420
  Serious: Yes (Other)
  Sender: FDA-Public Use
  Company Number: PY-TAKEDA-2020TUS061484

PATIENT
  Age: 50 Year
  Sex: Male
  Weight: 68.5 kg

DRUGS (1)
  1. VELAGLUCERASE ALFA [Suspect]
     Active Substance: VELAGLUCERASE ALFA
     Indication: GAUCHER^S DISEASE
     Dosage: 400 INTERNATIONAL UNIT, Q2WEEKS
     Route: 042
     Dates: start: 2009

REACTIONS (10)
  - Bone lesion [Not Recovered/Not Resolved]
  - Ligament sprain [Unknown]
  - Arthralgia [Unknown]
  - Muscle rigidity [Unknown]
  - Pain [Not Recovered/Not Resolved]
  - Osteoarthritis [Unknown]
  - Osteopenia [Unknown]
  - Metatarsalgia [Unknown]
  - Osteonecrosis [Not Recovered/Not Resolved]
  - Autoimmune disorder [Not Recovered/Not Resolved]

NARRATIVE: CASE EVENT DATE: 20201221
